FAERS Safety Report 8585075-0 (Version None)
Quarter: 2012Q2

REPORT INFORMATION
  Report Type: 
  Country: None (occurrence: None)
  Receive Date: 20120423
  Receipt Date: 20100115
  Transmission Date: 20120825
  Serious: Yes (Other)
  Sender: FDA-Public Use
  Company Number: PHHY2009US12620

PATIENT
  Age: 44 Year
  Sex: Male

DRUGS (4)
  1. ALLOPURINOL [Concomitant]
  2. FOLATE SODUM (FOLATE SODIUM) [Concomitant]
  3. EXJADE [Suspect]
     Indication: IRON OVERLOAD
     Dosage: 1500 MG, QD, ORAL
     Route: 048
     Dates: start: 20090313
  4. EXJADE [Suspect]
     Indication: THALASSAEMIA
     Dosage: 1500 MG, QD, ORAL
     Route: 048
     Dates: start: 20090313

REACTIONS (1)
  - HAEMATOCHEZIA [None]
